FAERS Safety Report 6388612-X (Version None)
Quarter: 2009Q4

REPORT INFORMATION
  Report Type: 
  Country: None (occurrence: None)
  Receive Date: 20091005
  Receipt Date: 20090924
  Transmission Date: 20100525
  Serious: Yes (Other)
  Sender: FDA-Public Use
  Company Number: AU-CELGENEUS-008-20785-09081526

PATIENT
  Sex: Female

DRUGS (5)
  1. THALIDOMIDE [Suspect]
     Indication: MULTIPLE MYELOMA
     Route: 048
  2. FENTANYL [Concomitant]
     Indication: PAIN
     Route: 065
     Dates: start: 20090706
  3. ENDONE [Concomitant]
     Indication: PAIN
     Route: 065
     Dates: start: 20090423
  4. CLEXANE [Concomitant]
     Route: 058
     Dates: start: 20090611
  5. DILTIAZEM [Concomitant]
     Indication: DRUG USE FOR UNKNOWN INDICATION
     Route: 065

REACTIONS (2)
  - NEUROPATHY PERIPHERAL [None]
  - NOCTURIA [None]
